FAERS Safety Report 10786626 (Version 1)
Quarter: 2015Q1

REPORT INFORMATION
  Report Type: Spontaneous
  Country: US (occurrence: US)
  Receive Date: 20150211
  Receipt Date: 20150211
  Transmission Date: 20150721
  Serious: Yes (Other)
  Sender: FDA-Public Use
  Company Number: PHHY2015US015876

PATIENT
  Age: 61 Year
  Sex: Female

DRUGS (2)
  1. MEPIVACAINE [Suspect]
     Active Substance: MEPIVACAINE\MEPIVACAINE HYDROCHLORIDE
     Indication: LOCAL ANAESTHESIA
     Dosage: 40 ML, UNK
     Route: 065
  2. LIDOCAINE. [Suspect]
     Active Substance: LIDOCAINE
     Indication: LOCAL ANAESTHESIA
     Dosage: 15 ML, UNK
     Route: 065

REACTIONS (4)
  - Oxygen saturation decreased [Unknown]
  - Atelectasis [Unknown]
  - Respiratory arrest [Unknown]
  - Unresponsive to stimuli [Unknown]
